FAERS Safety Report 8444274-9 (Version None)
Quarter: 2012Q2

REPORT INFORMATION
  Report Type: 
  Country: None (occurrence: None)
  Receive Date: 20120618
  Receipt Date: 20120611
  Transmission Date: 20120825
  Serious: No
  Sender: FDA-Public Use
  Company Number: US-PFIZER INC-2012141081

PATIENT
  Sex: Male
  Weight: 30.385 kg

DRUGS (1)
  1. CHILDREN'S ADVIL [Suspect]
     Indication: PYREXIA
     Dosage: 2 TEASPOONFUL ONCE
     Route: 048
     Dates: start: 20120610, end: 20120610

REACTIONS (1)
  - VOMITING [None]
